FAERS Safety Report 26171370 (Version 1)
Quarter: 2025Q4

REPORT INFORMATION
  Report Type: Spontaneous
  Country: CA (occurrence: CA)
  Receive Date: 20251217
  Receipt Date: 20251217
  Transmission Date: 20260118
  Serious: Yes (Life-Threatening, Hospitalization, Disabling, Other)
  Sender: BRISTOL-MYERS SQUIBB COMPANY
  Company Number: CA-BRISTOL-MYERS SQUIBB COMPANY-2025-168247

PATIENT
  Age: 43 Year
  Sex: Female
  Weight: 70 kg

DRUGS (301)
  1. ORENCIA [Suspect]
     Active Substance: ABATACEPT
     Indication: Rheumatoid arthritis
     Route: 042
  2. ORENCIA [Suspect]
     Active Substance: ABATACEPT
     Route: 042
  3. ORENCIA [Suspect]
     Active Substance: ABATACEPT
     Route: 058
  4. ORENCIA [Suspect]
     Active Substance: ABATACEPT
     Route: 058
  5. ORENCIA [Suspect]
     Active Substance: ABATACEPT
     Route: 042
  6. ORENCIA [Suspect]
     Active Substance: ABATACEPT
     Route: 017
  7. ORENCIA [Suspect]
     Active Substance: ABATACEPT
  8. ORENCIA [Suspect]
     Active Substance: ABATACEPT
     Route: 058
  9. ORENCIA [Suspect]
     Active Substance: ABATACEPT
     Route: 058
  10. ORENCIA [Suspect]
     Active Substance: ABATACEPT
     Route: 042
  11. ORENCIA [Suspect]
     Active Substance: ABATACEPT
     Route: 048
  12. ORENCIA [Suspect]
     Active Substance: ABATACEPT
  13. ORENCIA [Suspect]
     Active Substance: ABATACEPT
  14. ACETAMINOPHEN [Concomitant]
     Active Substance: ACETAMINOPHEN
     Indication: Rheumatoid arthritis
  15. ACETAMINOPHEN [Concomitant]
     Active Substance: ACETAMINOPHEN
     Indication: Product used for unknown indication
  16. ACETAMINOPHEN [Concomitant]
     Active Substance: ACETAMINOPHEN
  17. ACETAMINOPHEN [Concomitant]
     Active Substance: ACETAMINOPHEN
  18. ACETAMINOPHEN [Concomitant]
     Active Substance: ACETAMINOPHEN
     Route: 048
  19. ACETAMINOPHEN [Concomitant]
     Active Substance: ACETAMINOPHEN
  20. ACETAMINOPHEN [Concomitant]
     Active Substance: ACETAMINOPHEN
  21. ACETAMINOPHEN [Concomitant]
     Active Substance: ACETAMINOPHEN
     Route: 048
  22. ACTEMRA [Concomitant]
     Active Substance: TOCILIZUMAB
     Indication: Rheumatoid arthritis
     Route: 042
  23. ACTEMRA [Concomitant]
     Active Substance: TOCILIZUMAB
     Route: 042
  24. ACTEMRA [Concomitant]
     Active Substance: TOCILIZUMAB
     Route: 042
  25. ACTEMRA [Concomitant]
     Active Substance: TOCILIZUMAB
     Route: 016
  26. ACTEMRA [Concomitant]
     Active Substance: TOCILIZUMAB
     Route: 042
  27. ACTEMRA [Concomitant]
     Active Substance: TOCILIZUMAB
     Route: 048
  28. ACTEMRA [Concomitant]
     Active Substance: TOCILIZUMAB
     Route: 058
  29. ACTEMRA [Concomitant]
     Active Substance: TOCILIZUMAB
     Route: 048
  30. ACTEMRA [Concomitant]
     Active Substance: TOCILIZUMAB
  31. ACTEMRA [Concomitant]
     Active Substance: TOCILIZUMAB
     Route: 042
  32. ACTEMRA [Concomitant]
     Active Substance: TOCILIZUMAB
     Route: 042
  33. ACTEMRA [Concomitant]
     Active Substance: TOCILIZUMAB
     Route: 042
  34. ACTEMRA [Concomitant]
     Active Substance: TOCILIZUMAB
     Route: 058
  35. ACTEMRA [Concomitant]
     Active Substance: TOCILIZUMAB
     Route: 042
  36. ACTEMRA [Concomitant]
     Active Substance: TOCILIZUMAB
  37. ACTEMRA [Concomitant]
     Active Substance: TOCILIZUMAB
     Route: 042
  38. ACTEMRA [Concomitant]
     Active Substance: TOCILIZUMAB
     Route: 042
  39. ACTEMRA [Concomitant]
     Active Substance: TOCILIZUMAB
     Route: 042
  40. ACTEMRA [Concomitant]
     Active Substance: TOCILIZUMAB
     Route: 042
  41. ACTEMRA [Concomitant]
     Active Substance: TOCILIZUMAB
     Route: 042
  42. ACTEMRA [Concomitant]
     Active Substance: TOCILIZUMAB
  43. ACTEMRA [Concomitant]
     Active Substance: TOCILIZUMAB
  44. BENZOCAINE [Concomitant]
     Indication: Product used for unknown indication
  45. CALCIUM [Concomitant]
     Active Substance: CALCIUM
     Indication: Rheumatoid arthritis
  46. CALCIUM [Concomitant]
     Active Substance: CALCIUM
     Indication: Psoriatic arthropathy
  47. CALCIUM CARBONATE [Concomitant]
     Active Substance: CALCIUM CARBONATE
     Indication: Rheumatoid arthritis
  48. CALCIUM CARBONATE [Concomitant]
     Active Substance: CALCIUM CARBONATE
     Indication: Psoriatic arthropathy
  49. CALCIUM CARBONATE [Concomitant]
     Active Substance: CALCIUM CARBONATE
  50. CALCIUM CARBONATE [Concomitant]
     Active Substance: CALCIUM CARBONATE
  51. CALCIUM GLUBIONATE [Concomitant]
     Active Substance: CALCIUM GLUBIONATE
     Indication: Product used for unknown indication
  52. CALCIUM GLUBIONATE [Concomitant]
     Active Substance: CALCIUM GLUBIONATE
  53. CALCIUM GLUBIONATE [Concomitant]
     Active Substance: CALCIUM GLUBIONATE
  54. CALCIUM GLUBIONATE [Concomitant]
     Active Substance: CALCIUM GLUBIONATE
     Route: 016
  55. CELECOXIB [Concomitant]
     Active Substance: CELECOXIB
     Indication: Arthritis
  56. CELECOXIB [Concomitant]
     Active Substance: CELECOXIB
     Route: 048
  57. CELECOXIB [Concomitant]
     Active Substance: CELECOXIB
     Route: 048
  58. CELECOXIB [Concomitant]
     Active Substance: CELECOXIB
     Route: 048
  59. CERTOLIZUMAB PEGOL [Concomitant]
     Active Substance: CERTOLIZUMAB PEGOL
     Indication: Rheumatoid arthritis
  60. CETIRIZINE [Concomitant]
     Active Substance: CETIRIZINE HYDROCHLORIDE
     Indication: Rheumatoid arthritis
     Route: 048
  61. CETIRIZINE [Concomitant]
     Active Substance: CETIRIZINE HYDROCHLORIDE
     Route: 048
  62. CETIRIZINE [Concomitant]
     Active Substance: CETIRIZINE HYDROCHLORIDE
  63. CETIRIZINE [Concomitant]
     Active Substance: CETIRIZINE HYDROCHLORIDE
  64. CETIRIZINE HYDROCHLORIDE [Concomitant]
     Active Substance: CETIRIZINE HYDROCHLORIDE
     Indication: Rheumatoid arthritis
     Route: 048
  65. CETIRIZINE HYDROCHLORIDE [Concomitant]
     Active Substance: CETIRIZINE HYDROCHLORIDE
     Route: 048
  66. CETIRIZINE HYDROCHLORIDE [Concomitant]
     Active Substance: CETIRIZINE HYDROCHLORIDE
     Route: 048
  67. CETIRIZINE HYDROCHLORIDE [Concomitant]
     Active Substance: CETIRIZINE HYDROCHLORIDE
  68. CETIRIZINE HYDROCHLORIDE [Concomitant]
     Active Substance: CETIRIZINE HYDROCHLORIDE
  69. CETRIMONIUM BROMIDE [Concomitant]
     Active Substance: CETRIMONIUM BROMIDE
     Indication: Product used for unknown indication
  70. CETRIMONIUM BROMIDE [Concomitant]
     Active Substance: CETRIMONIUM BROMIDE
  71. CHLORAPREP [Concomitant]
     Active Substance: CHLORHEXIDINE GLUCONATE\ISOPROPYL ALCOHOL
     Indication: Product used for unknown indication
  72. CHLORAPREP [Concomitant]
     Active Substance: CHLORHEXIDINE GLUCONATE\ISOPROPYL ALCOHOL
  73. CHLORHEXIDINE [Concomitant]
     Active Substance: CHLORHEXIDINE
     Indication: Product used for unknown indication
     Route: 048
  74. CHLORHEXIDINE [Concomitant]
     Active Substance: CHLORHEXIDINE
  75. CHLORHEXIDINE [Concomitant]
     Active Substance: CHLORHEXIDINE
  76. CHLORHEXIDINE GLUCONATE [Concomitant]
     Active Substance: CHLORHEXIDINE GLUCONATE
     Indication: Product used for unknown indication
  77. CHLORHEXIDINE GLUCONATE [Concomitant]
     Active Substance: CHLORHEXIDINE GLUCONATE
  78. CHLORHEXIDINE GLUCONATE [Concomitant]
     Active Substance: CHLORHEXIDINE GLUCONATE
  79. CHOLECALCIFEROL [Concomitant]
     Active Substance: CHOLECALCIFEROL
     Indication: Product used for unknown indication
  80. CIMZIA [Concomitant]
     Active Substance: CERTOLIZUMAB PEGOL
     Indication: Rheumatoid arthritis
     Route: 048
  81. CIMZIA [Concomitant]
     Active Substance: CERTOLIZUMAB PEGOL
     Indication: Psoriasis
     Route: 058
  82. CIMZIA [Concomitant]
     Active Substance: CERTOLIZUMAB PEGOL
  83. CIMZIA [Concomitant]
     Active Substance: CERTOLIZUMAB PEGOL
     Route: 058
  84. CIMZIA [Concomitant]
     Active Substance: CERTOLIZUMAB PEGOL
  85. HYDROCORTISONE ACETATE [Concomitant]
     Active Substance: HYDROCORTISONE ACETATE
     Indication: Rheumatoid arthritis
  86. HYDROCORTISONE ACETATE [Concomitant]
     Active Substance: HYDROCORTISONE ACETATE
     Route: 003
  87. HYDROCORTISONE ACETATE [Concomitant]
     Active Substance: HYDROCORTISONE ACETATE
  88. CORTISONE ACETATE [Concomitant]
     Active Substance: CORTISONE ACETATE
     Indication: Rheumatoid arthritis
  89. CORTISONE ACETATE [Concomitant]
     Active Substance: CORTISONE ACETATE
     Route: 048
  90. CORTISONE ACETATE [Concomitant]
     Active Substance: CORTISONE ACETATE
  91. CORTISONE ACETATE [Concomitant]
     Active Substance: CORTISONE ACETATE
  92. CORTISONE ACETATE [Concomitant]
     Active Substance: CORTISONE ACETATE
  93. CORTISONE ACETATE [Concomitant]
     Active Substance: CORTISONE ACETATE
     Route: 048
  94. CORTISONE ACETATE [Concomitant]
     Active Substance: CORTISONE ACETATE
  95. COSENTYX [Concomitant]
     Active Substance: SECUKINUMAB
     Indication: Rheumatoid arthritis
     Route: 042
  96. COSENTYX [Concomitant]
     Active Substance: SECUKINUMAB
  97. DESOXIMETASONE [Concomitant]
     Active Substance: DESOXIMETASONE
     Indication: Rheumatoid arthritis
  98. DESOXIMETASONE [Concomitant]
     Active Substance: DESOXIMETASONE
     Route: 048
  99. DESOXIMETASONE [Concomitant]
     Active Substance: DESOXIMETASONE
  100. DESOXIMETASONE [Concomitant]
     Active Substance: DESOXIMETASONE
  101. DESOXIMETASONE [Concomitant]
     Active Substance: DESOXIMETASONE
     Route: 058
  102. DESOXIMETASONE [Concomitant]
     Active Substance: DESOXIMETASONE
  103. DEXAMETHASONE SODIUM PHOSPHATE [Concomitant]
     Active Substance: DEXAMETHASONE SODIUM PHOSPHATE
     Indication: Product used for unknown indication
  104. DICLOFENAC [Concomitant]
     Active Substance: DICLOFENAC
     Indication: Rheumatoid arthritis
  105. DICLOFENAC [Concomitant]
     Active Substance: DICLOFENAC
     Indication: Osteoarthritis
  106. DICLOFENAC [Concomitant]
     Active Substance: DICLOFENAC
     Indication: Inflammation
  107. DICLOFENAC [Concomitant]
     Active Substance: DICLOFENAC
  108. DICLOFENAC [Concomitant]
     Active Substance: DICLOFENAC
  109. DICLOFENAC [Concomitant]
     Active Substance: DICLOFENAC
  110. DOXYCYCLINE [Concomitant]
     Active Substance: DOXYCYCLINE
     Indication: Product used for unknown indication
  111. ELBASVIR [Concomitant]
     Active Substance: ELBASVIR
     Indication: Rheumatoid arthritis
  112. ERELZI [Concomitant]
     Active Substance: ETANERCEPT-SZZS
     Indication: Rheumatoid arthritis
     Route: 058
  113. ERELZI [Concomitant]
     Active Substance: ETANERCEPT-SZZS
     Indication: Psoriatic arthropathy
     Route: 058
  114. ERELZI [Concomitant]
     Active Substance: ETANERCEPT-SZZS
  115. ERELZI [Concomitant]
     Active Substance: ETANERCEPT-SZZS
  116. ERELZI [Concomitant]
     Active Substance: ETANERCEPT-SZZS
  117. ERELZI [Concomitant]
     Active Substance: ETANERCEPT-SZZS
     Route: 058
  118. ERELZI [Concomitant]
     Active Substance: ETANERCEPT-SZZS
     Route: 058
  119. FLUMETHASONE PIVALATE [Concomitant]
     Active Substance: FLUMETHASONE PIVALATE
     Indication: Rheumatoid arthritis
  120. FLUMETHASONE PIVALATE [Concomitant]
     Active Substance: FLUMETHASONE PIVALATE
     Route: 058
  121. FLUMETHASONE PIVALATE [Concomitant]
     Active Substance: FLUMETHASONE PIVALATE
  122. FLUMETHASONE PIVALATE [Concomitant]
     Active Substance: FLUMETHASONE PIVALATE
  123. FOLIC ACID [Concomitant]
     Active Substance: FOLIC ACID
     Indication: Rheumatoid arthritis
  124. FOLIC ACID [Concomitant]
     Active Substance: FOLIC ACID
     Route: 048
  125. FOLIC ACID [Concomitant]
     Active Substance: FOLIC ACID
  126. FOLIC ACID [Concomitant]
     Active Substance: FOLIC ACID
  127. FOLIC ACID [Concomitant]
     Active Substance: FOLIC ACID
  128. FOLIC ACID [Concomitant]
     Active Substance: FOLIC ACID
  129. FOLIC ACID [Concomitant]
     Active Substance: FOLIC ACID
  130. FOLIC ACID [Concomitant]
     Active Substance: FOLIC ACID
     Route: 058
  131. FOLIC ACID [Concomitant]
     Active Substance: FOLIC ACID
  132. FOLIC ACID [Concomitant]
     Active Substance: FOLIC ACID
  133. FOLIC ACID [Concomitant]
     Active Substance: FOLIC ACID
     Route: 048
  134. FOLIC ACID [Concomitant]
     Active Substance: FOLIC ACID
     Route: 048
  135. FOSAMAX [Concomitant]
     Active Substance: ALENDRONATE SODIUM
     Indication: Rheumatoid arthritis
  136. FOSAMAX [Concomitant]
     Active Substance: ALENDRONATE SODIUM
  137. FOSAMAX [Concomitant]
     Active Substance: ALENDRONATE SODIUM
     Route: 058
  138. GOLIMUMAB [Concomitant]
     Active Substance: GOLIMUMAB
     Indication: Rheumatoid arthritis
  139. GOLIMUMAB [Concomitant]
     Active Substance: GOLIMUMAB
     Indication: Prostatic specific antigen
     Route: 058
  140. HYDROCORTISONE ACETATE [Concomitant]
     Active Substance: HYDROCORTISONE ACETATE
     Indication: Rheumatoid arthritis
  141. HYDROCORTISONE ACETATE [Concomitant]
     Active Substance: HYDROCORTISONE ACETATE
     Route: 003
  142. HYDROCORTISONE ACETATE [Concomitant]
     Active Substance: HYDROCORTISONE ACETATE
  143. HYDROXYCHLOROQUINE [Concomitant]
     Active Substance: HYDROXYCHLOROQUINE
     Indication: Rheumatoid arthritis
  144. HYDROXYCHLOROQUINE [Concomitant]
     Active Substance: HYDROXYCHLOROQUINE
  145. HYDROXYCHLOROQUINE [Concomitant]
     Active Substance: HYDROXYCHLOROQUINE
  146. HYDROXYCHLOROQUINE [Concomitant]
     Active Substance: HYDROXYCHLOROQUINE
     Route: 048
  147. HYDROXYCHLOROQUINE [Concomitant]
     Active Substance: HYDROXYCHLOROQUINE
     Route: 048
  148. HYDROXYCHLOROQUINE [Concomitant]
     Active Substance: HYDROXYCHLOROQUINE
  149. HYDROXYCHLOROQUINE [Concomitant]
     Active Substance: HYDROXYCHLOROQUINE
  150. HYDROXYCHLOROQUINE SULFATE [Concomitant]
     Active Substance: HYDROXYCHLOROQUINE SULFATE
     Indication: Rheumatoid arthritis
     Route: 058
  151. HYDROXYCHLOROQUINE SULFATE [Concomitant]
     Active Substance: HYDROXYCHLOROQUINE SULFATE
  152. HYDROXYCHLOROQUINE SULFATE [Concomitant]
     Active Substance: HYDROXYCHLOROQUINE SULFATE
  153. HYDROXYCHLOROQUINE SULFATE [Concomitant]
     Active Substance: HYDROXYCHLOROQUINE SULFATE
     Route: 048
  154. HYDROXYCHLOROQUINE SULFATE [Concomitant]
     Active Substance: HYDROXYCHLOROQUINE SULFATE
     Route: 048
  155. HYDROXYCHLOROQUINE SULFATE [Concomitant]
     Active Substance: HYDROXYCHLOROQUINE SULFATE
  156. HYDROXYCHLOROQUINE SULFATE [Concomitant]
     Active Substance: HYDROXYCHLOROQUINE SULFATE
  157. HYRIMOZ [Concomitant]
     Active Substance: ADALIMUMAB-ADAZ
     Indication: Rheumatoid arthritis
     Route: 058
  158. HYRIMOZ [Concomitant]
     Active Substance: ADALIMUMAB-ADAZ
     Indication: Psoriatic arthropathy
     Route: 058
  159. HYRIMOZ [Concomitant]
     Active Substance: ADALIMUMAB-ADAZ
  160. HYRIMOZ [Concomitant]
     Active Substance: ADALIMUMAB-ADAZ
     Route: 058
  161. HYRIMOZ [Concomitant]
     Active Substance: ADALIMUMAB-ADAZ
     Route: 058
  162. HYRIMOZ [Concomitant]
     Active Substance: ADALIMUMAB-ADAZ
     Route: 058
  163. HYRIMOZ [Concomitant]
     Active Substance: ADALIMUMAB-ADAZ
     Route: 058
  164. HYRIMOZ [Concomitant]
     Active Substance: ADALIMUMAB-ADAZ
  165. HYRIMOZ [Concomitant]
     Active Substance: ADALIMUMAB-ADAZ
     Route: 058
  166. HYRIMOZ [Concomitant]
     Active Substance: ADALIMUMAB-ADAZ
     Route: 058
  167. HYRIMOZ [Concomitant]
     Active Substance: ADALIMUMAB-ADAZ
     Route: 058
  168. HYRIMOZ [Concomitant]
     Active Substance: ADALIMUMAB-ADAZ
     Route: 058
  169. HYRIMOZ [Concomitant]
     Active Substance: ADALIMUMAB-ADAZ
     Route: 058
  170. INFLIXIMAB [Concomitant]
     Active Substance: INFLIXIMAB
     Indication: Rheumatoid arthritis
  171. INFLIXIMAB [Concomitant]
     Active Substance: INFLIXIMAB
     Route: 042
  172. ISOPROPYL ALCOHOL [Concomitant]
     Active Substance: ISOPROPYL ALCOHOL
     Indication: Product used for unknown indication
  173. ISOPROPYL ALCOHOL [Concomitant]
     Active Substance: ISOPROPYL ALCOHOL
  174. ISOPROPYL ALCOHOL [Concomitant]
     Active Substance: ISOPROPYL ALCOHOL
  175. METHOTREXATE [Concomitant]
     Active Substance: METHOTREXATE
     Indication: Rheumatoid arthritis
     Route: 048
  176. METHOTREXATE [Concomitant]
     Active Substance: METHOTREXATE
  177. METHOTREXATE [Concomitant]
     Active Substance: METHOTREXATE
     Route: 048
  178. METHOTREXATE [Concomitant]
     Active Substance: METHOTREXATE
  179. METHOTREXATE [Concomitant]
     Active Substance: METHOTREXATE
     Route: 014
  180. METHOTREXATE [Concomitant]
     Active Substance: METHOTREXATE
     Route: 013
  181. METHOTREXATE [Concomitant]
     Active Substance: METHOTREXATE
  182. METHOTREXATE [Concomitant]
     Active Substance: METHOTREXATE
     Route: 048
  183. METHOTREXATE [Concomitant]
     Active Substance: METHOTREXATE
  184. METHOTREXATE [Concomitant]
     Active Substance: METHOTREXATE
  185. METHOTREXATE [Concomitant]
     Active Substance: METHOTREXATE
     Route: 048
  186. METHOTREXATE [Concomitant]
     Active Substance: METHOTREXATE
     Route: 048
  187. METHOTREXATE [Concomitant]
     Active Substance: METHOTREXATE
     Route: 048
  188. METHOTREXATE [Concomitant]
     Active Substance: METHOTREXATE
     Route: 048
  189. METHOTREXATE [Concomitant]
     Active Substance: METHOTREXATE
  190. NAPROXEN SODIUM [Concomitant]
     Active Substance: NAPROXEN SODIUM
     Indication: Rheumatoid arthritis
  191. NAPROXEN SODIUM [Concomitant]
     Active Substance: NAPROXEN SODIUM
     Indication: Psoriatic arthropathy
  192. NAPROXEN SODIUM [Concomitant]
     Active Substance: NAPROXEN SODIUM
  193. NAPROXEN SODIUM [Concomitant]
     Active Substance: NAPROXEN SODIUM
  194. OXYCODONE [Concomitant]
     Active Substance: OXYCODONE
     Indication: Product used for unknown indication
  195. OXYCODONE TEREPHTHALATE [Concomitant]
     Active Substance: OXYCODONE TEREPHTHALATE
     Indication: Product used for unknown indication
  196. PANTOPRAZOLE SODIUM [Concomitant]
     Active Substance: PANTOPRAZOLE SODIUM
     Indication: Product used for unknown indication
  197. PERIOGARD [Concomitant]
     Active Substance: CHLORHEXIDINE GLUCONATE
     Indication: Product used for unknown indication
     Route: 002
  198. PERIOGARD [Concomitant]
     Active Substance: CHLORHEXIDINE GLUCONATE
  199. PHTHALYLSULFATHIAZOLE [Concomitant]
     Active Substance: PHTHALYLSULFATHIAZOLE
     Indication: Rheumatoid arthritis
     Route: 042
  200. PHTHALYLSULFATHIAZOLE [Concomitant]
     Active Substance: PHTHALYLSULFATHIAZOLE
     Route: 048
  201. PHTHALYLSULFATHIAZOLE [Concomitant]
     Active Substance: PHTHALYLSULFATHIAZOLE
     Route: 058
  202. PHTHALYLSULFATHIAZOLE [Concomitant]
     Active Substance: PHTHALYLSULFATHIAZOLE
     Route: 058
  203. PHTHALYLSULFATHIAZOLE [Concomitant]
     Active Substance: PHTHALYLSULFATHIAZOLE
  204. PLAQUENIL [Concomitant]
     Active Substance: HYDROXYCHLOROQUINE SULFATE
     Indication: Rheumatoid arthritis
  205. PLAQUENIL [Concomitant]
     Active Substance: HYDROXYCHLOROQUINE SULFATE
  206. PLAQUENIL [Concomitant]
     Active Substance: HYDROXYCHLOROQUINE SULFATE
  207. PLAQUENIL [Concomitant]
     Active Substance: HYDROXYCHLOROQUINE SULFATE
  208. PLAQUENIL [Concomitant]
     Active Substance: HYDROXYCHLOROQUINE SULFATE
     Route: 048
  209. PLAQUENIL [Concomitant]
     Active Substance: HYDROXYCHLOROQUINE SULFATE
     Route: 048
  210. PLAQUENIL [Concomitant]
     Active Substance: HYDROXYCHLOROQUINE SULFATE
  211. PLAQUENIL [Concomitant]
     Active Substance: HYDROXYCHLOROQUINE SULFATE
     Route: 048
  212. PLAQUENIL [Concomitant]
     Active Substance: HYDROXYCHLOROQUINE SULFATE
  213. PLAQUENIL [Concomitant]
     Active Substance: HYDROXYCHLOROQUINE SULFATE
     Route: 048
  214. PREDNISONE [Concomitant]
     Active Substance: PREDNISONE
     Indication: Rheumatoid arthritis
  215. PREDNISONE [Concomitant]
     Active Substance: PREDNISONE
  216. PREDNISONE [Concomitant]
     Active Substance: PREDNISONE
  217. PREDNISONE [Concomitant]
     Active Substance: PREDNISONE
  218. PREDNISONE [Concomitant]
     Active Substance: PREDNISONE
     Route: 048
  219. PREDNISONE [Concomitant]
     Active Substance: PREDNISONE
     Route: 048
  220. PREDNISONE [Concomitant]
     Active Substance: PREDNISONE
     Route: 048
  221. PREDNISONE [Concomitant]
     Active Substance: PREDNISONE
  222. PREDNISONE [Concomitant]
     Active Substance: PREDNISONE
     Route: 048
  223. PSEUDOEPHEDRINE [Concomitant]
     Active Substance: PSEUDOEPHEDRINE
     Indication: Rheumatoid arthritis
  224. PSEUDOEPHEDRINE HYDROCHLORIDE [Concomitant]
     Active Substance: PSEUDOEPHEDRINE HYDROCHLORIDE
     Indication: Rheumatoid arthritis
  225. PSEUDOEPHEDRINE HYDROCHLORIDE [Concomitant]
     Active Substance: PSEUDOEPHEDRINE HYDROCHLORIDE
  226. PSEUDOEPHEDRINE HYDROCHLORIDE [Concomitant]
     Active Substance: PSEUDOEPHEDRINE HYDROCHLORIDE
  227. PSEUDOEPHEDRINE HYDROCHLORIDE [Concomitant]
     Active Substance: PSEUDOEPHEDRINE HYDROCHLORIDE
  228. PSEUDOEPHEDRINE HYDROCHLORIDE [Concomitant]
     Active Substance: PSEUDOEPHEDRINE HYDROCHLORIDE
  229. REACTINE [Concomitant]
     Indication: Rheumatoid arthritis
  230. CETIRIZINE HYDROCHLORIDE\PSEUDOEPHEDRINE HYDROCHLORIDE [Concomitant]
     Active Substance: CETIRIZINE HYDROCHLORIDE\PSEUDOEPHEDRINE HYDROCHLORIDE
     Indication: Rheumatoid arthritis
  231. CETIRIZINE HYDROCHLORIDE\PSEUDOEPHEDRINE HYDROCHLORIDE [Concomitant]
     Active Substance: CETIRIZINE HYDROCHLORIDE\PSEUDOEPHEDRINE HYDROCHLORIDE
     Indication: Off label use
     Dosage: EXTENDED RELEASE
  232. CETIRIZINE HYDROCHLORIDE\PSEUDOEPHEDRINE HYDROCHLORIDE [Concomitant]
     Active Substance: CETIRIZINE HYDROCHLORIDE\PSEUDOEPHEDRINE HYDROCHLORIDE
  233. RISEDRONATE SODIUM [Concomitant]
     Active Substance: RISEDRONATE SODIUM
     Indication: Product used for unknown indication
  234. RITUXIMAB [Concomitant]
     Active Substance: RITUXIMAB
     Indication: Rheumatoid arthritis
     Route: 042
  235. RITUXIMAB [Concomitant]
     Active Substance: RITUXIMAB
     Route: 043
  236. RITUXIMAB [Concomitant]
     Active Substance: RITUXIMAB
     Route: 058
  237. RITUXIMAB [Concomitant]
     Active Substance: RITUXIMAB
     Route: 042
  238. RITUXIMAB [Concomitant]
     Active Substance: RITUXIMAB
     Route: 042
  239. RITUXIMAB [Concomitant]
     Active Substance: RITUXIMAB
  240. ALENDRONATE SODIUM [Concomitant]
     Active Substance: ALENDRONATE SODIUM
     Indication: Rheumatoid arthritis
  241. ALENDRONATE SODIUM [Concomitant]
     Active Substance: ALENDRONATE SODIUM
  242. APREMILAST [Concomitant]
     Active Substance: APREMILAST
     Indication: Product used for unknown indication
     Route: 048
  243. APREMILAST [Concomitant]
     Active Substance: APREMILAST
     Route: 048
  244. HYDROCORTISONE [Concomitant]
     Active Substance: HYDROCORTISONE
     Indication: Rheumatoid arthritis
  245. LEFLUNOMIDE [Concomitant]
     Active Substance: LEFLUNOMIDE
     Indication: Rheumatoid arthritis
  246. LEFLUNOMIDE [Concomitant]
     Active Substance: LEFLUNOMIDE
  247. LEFLUNOMIDE [Concomitant]
     Active Substance: LEFLUNOMIDE
  248. LEFLUNOMIDE [Concomitant]
     Active Substance: LEFLUNOMIDE
     Route: 048
  249. LEFLUNOMIDE [Concomitant]
     Active Substance: LEFLUNOMIDE
     Route: 048
  250. LEFLUNOMIDE [Concomitant]
     Active Substance: LEFLUNOMIDE
     Route: 048
  251. LEFLUNOMIDE [Concomitant]
     Active Substance: LEFLUNOMIDE
     Route: 048
  252. MYCOPHENOLATE MOFETIL [Concomitant]
     Active Substance: MYCOPHENOLATE MOFETIL
     Indication: Product used for unknown indication
  253. PREGABALIN [Concomitant]
     Active Substance: PREGABALIN
     Indication: Product used for unknown indication
  254. SIMPONI [Concomitant]
     Active Substance: GOLIMUMAB
     Indication: Rheumatoid arthritis
     Route: 058
  255. SIMPONI [Concomitant]
     Active Substance: GOLIMUMAB
     Route: 058
  256. STELARA [Concomitant]
     Active Substance: USTEKINUMAB
     Indication: Product used for unknown indication
  257. STELARA [Concomitant]
     Active Substance: USTEKINUMAB
     Route: 058
  258. STELARA [Concomitant]
     Active Substance: USTEKINUMAB
     Route: 042
  259. SULFAMETHOXAZOLE\TRIMETHOPRIM [Concomitant]
     Active Substance: SULFAMETHOXAZOLE\TRIMETHOPRIM
     Indication: Product used for unknown indication
  260. SULFASALAZINE [Concomitant]
     Active Substance: SULFASALAZINE
     Indication: Rheumatoid arthritis
  261. SULFASALAZINE [Concomitant]
     Active Substance: SULFASALAZINE
     Route: 048
  262. SULFASALAZINE [Concomitant]
     Active Substance: SULFASALAZINE
     Route: 048
  263. SULFASALAZINE [Concomitant]
     Active Substance: SULFASALAZINE
     Route: 048
  264. SULFASALAZINE [Concomitant]
     Active Substance: SULFASALAZINE
  265. SULFASALAZINE [Concomitant]
     Active Substance: SULFASALAZINE
     Route: 048
  266. SULFASALAZINE [Concomitant]
     Active Substance: SULFASALAZINE
  267. SULFASALAZINE [Concomitant]
     Active Substance: SULFASALAZINE
  268. SULFASALAZINE [Concomitant]
     Active Substance: SULFASALAZINE
     Route: 048
  269. SULFASALAZINE [Concomitant]
     Active Substance: SULFASALAZINE
  270. SULFASALAZINE [Concomitant]
     Active Substance: SULFASALAZINE
     Route: 048
  271. SULFASALAZINE [Concomitant]
     Active Substance: SULFASALAZINE
  272. SULFASALAZINE [Concomitant]
     Active Substance: SULFASALAZINE
  273. SULFASALAZINE [Concomitant]
     Active Substance: SULFASALAZINE
     Route: 048
  274. SULFASALAZINE [Concomitant]
     Active Substance: SULFASALAZINE
     Route: 048
  275. SULFASALAZINE [Concomitant]
     Active Substance: SULFASALAZINE
     Route: 058
  276. SULFASALAZINE [Concomitant]
     Active Substance: SULFASALAZINE
  277. SULFASALAZINE [Concomitant]
     Active Substance: SULFASALAZINE
     Route: 048
  278. SULFASALAZINE [Concomitant]
     Active Substance: SULFASALAZINE
     Route: 048
  279. SULFASALAZINE [Concomitant]
     Active Substance: SULFASALAZINE
     Route: 048
  280. SULFASALAZINE [Concomitant]
     Active Substance: SULFASALAZINE
     Route: 048
  281. SULFASALAZINE [Concomitant]
     Active Substance: SULFASALAZINE
     Route: 048
  282. SULFASALAZINE [Concomitant]
     Active Substance: SULFASALAZINE
     Route: 048
  283. TOCILIZUMAB [Concomitant]
     Active Substance: TOCILIZUMAB
     Indication: Rheumatoid arthritis
  284. TOFACITINIB CITRATE [Concomitant]
     Active Substance: TOFACITINIB CITRATE
     Indication: Rheumatoid arthritis
  285. TOFACITINIB CITRATE [Concomitant]
     Active Substance: TOFACITINIB CITRATE
  286. TOFACITINIB CITRATE [Concomitant]
     Active Substance: TOFACITINIB CITRATE
     Route: 048
  287. TOFACITINIB CITRATE [Concomitant]
     Active Substance: TOFACITINIB CITRATE
  288. TOFACITINIB CITRATE [Concomitant]
     Active Substance: TOFACITINIB CITRATE
     Route: 048
  289. TOFACITINIB CITRATE [Concomitant]
     Active Substance: TOFACITINIB CITRATE
  290. TOFACITINIB CITRATE [Concomitant]
     Active Substance: TOFACITINIB CITRATE
  291. USTEKINUMAB [Concomitant]
     Active Substance: USTEKINUMAB
     Indication: Product used for unknown indication
     Route: 058
  292. USTEKINUMAB [Concomitant]
     Active Substance: USTEKINUMAB
  293. VITAMIN C [Concomitant]
     Active Substance: ASCORBIC ACID
     Indication: Rheumatoid arthritis
  294. VITAMIN D3 [Concomitant]
     Active Substance: CHOLECALCIFEROL
     Indication: Product used for unknown indication
     Route: 016
  295. VITAMIN D3 [Concomitant]
     Active Substance: CHOLECALCIFEROL
  296. HYALURONIDASE (HUMAN RECOMBINANT) [Concomitant]
     Active Substance: HYALURONIDASE (HUMAN RECOMBINANT)
     Indication: Rheumatoid arthritis
  297. XELJANZ [Concomitant]
     Active Substance: TOFACITINIB CITRATE
     Indication: Rheumatoid arthritis
  298. XELJANZ [Concomitant]
     Active Substance: TOFACITINIB CITRATE
  299. XELJANZ [Concomitant]
     Active Substance: TOFACITINIB CITRATE
  300. XELJANZ [Concomitant]
     Active Substance: TOFACITINIB CITRATE
  301. XELJANZ [Concomitant]
     Active Substance: TOFACITINIB CITRATE

REACTIONS (7)
  - Drug ineffective [Not Recovered/Not Resolved]
  - Mobility decreased [Not Recovered/Not Resolved]
  - Pruritus [Not Recovered/Not Resolved]
  - Therapeutic product effect decreased [Not Recovered/Not Resolved]
  - Therapy non-responder [Not Recovered/Not Resolved]
  - Hospitalisation [Unknown]
  - Adverse event [Unknown]
